FAERS Safety Report 6726217-9 (Version None)
Quarter: 2010Q2

REPORT INFORMATION
  Report Type: 
  Country: None (occurrence: None)
  Receive Date: 20100514
  Receipt Date: 20100503
  Transmission Date: 20101027
  Serious: Yes (Other)
  Sender: FDA-Public Use
  Company Number: US-PFIZER INC-2010039747

PATIENT
  Age: 82 Year
  Sex: Male

DRUGS (3)
  1. ZYVOX [Suspect]
     Indication: ENTEROCOCCAL INFECTION
     Dosage: 300 MG, 2X/DAY
     Route: 048
     Dates: start: 20100101, end: 20100101
  2. INVANZ [Concomitant]
     Dosage: UNK
  3. DAPTOMYCIN [Concomitant]
     Dosage: UNK

REACTIONS (5)
  - CHOLECYSTOSTOMY [None]
  - HALLUCINATION [None]
  - INSOMNIA [None]
  - PARANOIA [None]
  - SLEEP DISORDER [None]
